FAERS Safety Report 20212586 (Version 4)
Quarter: 2022Q1

REPORT INFORMATION
  Report Type: Report from Study
  Country: HU (occurrence: None)
  Receive Date: 20211221
  Receipt Date: 20220113
  Transmission Date: 20220423
  Serious: No
  Sender: FDA-Public Use
  Company Number: HU-Eisai Medical Research-EC-2021-103911

PATIENT
  Age: 71 Year
  Sex: Female
  Weight: 72 kg

DRUGS (15)
  1. LENVATINIB [Suspect]
     Active Substance: LENVATINIB
     Indication: Clear cell renal cell carcinoma
     Dosage: STARTING DOSE AT 20 MG, FLUCTUATED DOSAGE
     Route: 048
     Dates: start: 20210804, end: 20211019
  2. LENVATINIB [Suspect]
     Active Substance: LENVATINIB
     Route: 048
     Dates: start: 20211027, end: 20211109
  3. LENVATINIB [Suspect]
     Active Substance: LENVATINIB
     Dosage: STARTING DOSE AT 14 MG, FLUCTUATED DOSAGE;
     Route: 048
     Dates: start: 20211117
  4. PEMBROLIZUMAB [Suspect]
     Active Substance: PEMBROLIZUMAB
     Indication: Clear cell renal cell carcinoma
     Route: 041
     Dates: start: 20210804, end: 20210804
  5. PEMBROLIZUMAB [Suspect]
     Active Substance: PEMBROLIZUMAB
     Route: 041
     Dates: start: 20210929, end: 20210929
  6. PEMBROLIZUMAB [Suspect]
     Active Substance: PEMBROLIZUMAB
     Route: 041
     Dates: start: 20211117, end: 20211117
  7. BELZUTIFAN [Suspect]
     Active Substance: BELZUTIFAN
     Indication: Clear cell renal cell carcinoma
     Route: 048
     Dates: start: 20210804, end: 20211019
  8. BELZUTIFAN [Suspect]
     Active Substance: BELZUTIFAN
     Route: 048
     Dates: start: 20211027, end: 20211109
  9. BELZUTIFAN [Suspect]
     Active Substance: BELZUTIFAN
     Route: 048
     Dates: start: 20211117
  10. BISOPROLOL FUMARATE [Concomitant]
     Active Substance: BISOPROLOL FUMARATE
     Dates: start: 20050101
  11. ROSUVASTATIN CALCIUM [Concomitant]
     Active Substance: ROSUVASTATIN CALCIUM
     Dates: start: 20050101
  12. APO-FAMOTIDIN [Concomitant]
     Dates: start: 20210915
  13. MOMETASONE FUROATE [Concomitant]
     Active Substance: MOMETASONE FUROATE
     Dates: start: 20211020
  14. LORDESTIN [Concomitant]
     Dates: start: 20211020
  15. TANTUM [BENZYDAMINE HYDROCHLORIDE] [Concomitant]
     Dates: start: 20210908

REACTIONS (2)
  - Alanine aminotransferase increased [Recovered/Resolved]
  - Aspartate aminotransferase increased [Recovered/Resolved]

NARRATIVE: CASE EVENT DATE: 20211110
